FAERS Safety Report 8267617-8 (Version None)
Quarter: 2012Q2

REPORT INFORMATION
  Report Type: 
  Country: None (occurrence: None)
  Receive Date: 20120409
  Receipt Date: 20120402
  Transmission Date: 20120825
  Serious: Yes (Other)
  Sender: FDA-Public Use
  Company Number: JP-ELI_LILLY_AND_COMPANY-JP201203001218

PATIENT
  Sex: Female
  Weight: 50 kg

DRUGS (4)
  1. LENDORMIN [Concomitant]
     Dosage: UNK
     Route: 048
     Dates: start: 20120131
  2. LEVOTOMIN [Concomitant]
     Indication: SEDATION
     Dosage: UNK
     Route: 048
     Dates: start: 20120203
  3. ZYPREXA [Suspect]
     Indication: HALLUCINATION
     Dosage: 10 MG, QD
     Route: 048
     Dates: start: 20120127, end: 20120218
  4. PHENOBARBITAL TAB [Concomitant]
     Dosage: UNK
     Route: 048
     Dates: start: 20120202

REACTIONS (4)
  - AGITATION [None]
  - AGGRESSION [None]
  - IRRITABILITY [None]
  - OFF LABEL USE [None]
